FAERS Safety Report 6609146-0 (Version None)
Quarter: 2010Q1

REPORT INFORMATION
  Report Type: 
  Country: None (occurrence: None)
  Receive Date: 20100226
  Receipt Date: 20100226
  Transmission Date: 20100710
  Serious: Yes (Other)
  Sender: FDA-Public Use
  Company Number: None

PATIENT
  Age: 27 Year
  Sex: Female
  Weight: 76.6579 kg

DRUGS (2)
  1. LUPRON [Suspect]
  2. LUPRON [Concomitant]

REACTIONS (3)
  - AMNESIA [None]
  - ARTHRALGIA [None]
  - PRODUCT QUALITY ISSUE [None]
